FAERS Safety Report 13595493 (Version 1)
Quarter: 2017Q2

REPORT INFORMATION
  Report Type: Spontaneous
  Country: US (occurrence: US)
  Receive Date: 20170531
  Receipt Date: 20170531
  Transmission Date: 20170830
  Serious: No
  Sender: FDA-Public Use
  Company Number: US-JNJFOC-20170227211

PATIENT
  Age: 30 Month
  Sex: Female
  Weight: 11.79 kg

DRUGS (2)
  1. CHILDRENS MOTRIN [Suspect]
     Active Substance: IBUPROFEN
     Indication: PYREXIA
     Dosage: 1X ON 02/26/17 AND AGAIN 1X ON 02/27/17 IN THE MORNING USING THE DOSING CUP TO MEASURE
     Route: 048
     Dates: start: 20170226, end: 20170227
  2. CHILDRENS MOTRIN [Suspect]
     Active Substance: IBUPROFEN
     Route: 048

REACTIONS (1)
  - Expired product administered [Unknown]
